FAERS Safety Report 18792995 (Version 3)
Quarter: 2021Q1

REPORT INFORMATION
  Report Type: Report from Study
  Country: None (occurrence: US)
  Receive Date: 20210127
  Receipt Date: 20210312
  Transmission Date: 20210419
  Serious: Yes (Hospitalization, Other)
  Sender: FDA-Public Use
  Company Number: US-ABBVIE-21K-163-3745524-00

PATIENT
  Age: 93 Year
  Sex: Female
  Weight: 44.04 kg

DRUGS (5)
  1. CREON [Suspect]
     Active Substance: PANCRELIPASE AMYLASE\PANCRELIPASE LIPASE\PANCRELIPASE PROTEASE
     Dosage: 1 CAPSULES WITH EACH MEAL
     Route: 048
     Dates: start: 2020, end: 2020
  2. CREON [Suspect]
     Active Substance: PANCRELIPASE AMYLASE\PANCRELIPASE LIPASE\PANCRELIPASE PROTEASE
     Indication: DIARRHOEA
     Dosage: 2?3 CAPSULES WITH EACH MEAL, 1?3 CAPSULES WITH EACH SNACK
     Route: 048
     Dates: start: 202010, end: 2020
  3. CREON [Suspect]
     Active Substance: PANCRELIPASE AMYLASE\PANCRELIPASE LIPASE\PANCRELIPASE PROTEASE
     Dosage: 3 CAPSULES WITH EACH MEAL
     Route: 048
     Dates: start: 2020
  4. COVID?19 VACCINE [Concomitant]
     Indication: COVID-19 IMMUNISATION
     Dosage: ASTRAZENECA, TOOK IT THREE WEEKS BEFORE ?FEB?2021
     Route: 030
     Dates: start: 2021, end: 2021
  5. COVID?19 VACCINE [Concomitant]
     Dosage: ASTRAZENECA
     Route: 030
     Dates: start: 202102, end: 202102

REACTIONS (6)
  - SARS-CoV-2 test positive [Recovered/Resolved]
  - Hypoacusis [Unknown]
  - Fall [Recovered/Resolved]
  - Hip fracture [Recovering/Resolving]
  - Diarrhoea [Unknown]
  - Femur fracture [Recovering/Resolving]

NARRATIVE: CASE EVENT DATE: 202012
